FAERS Safety Report 14045693 (Version 4)
Quarter: 2018Q3

REPORT INFORMATION
  Report Type: Spontaneous
  Country: US (occurrence: US)
  Receive Date: 20171005
  Receipt Date: 20180828
  Transmission Date: 20181010
  Serious: Yes (Other)
  Sender: FDA-Public Use
  Company Number: US-INCYTE CORPORATION-2017IN008284

PATIENT

DRUGS (2)
  1. JAKAFI [Suspect]
     Active Substance: RUXOLITINIB
     Indication: HYPERCOAGULATION
     Dosage: 15 MG, QOD
     Route: 048
     Dates: start: 20151101
  2. JAKAFI [Suspect]
     Active Substance: RUXOLITINIB
     Dosage: 15 MG, QOD
     Route: 048
     Dates: start: 20151201

REACTIONS (12)
  - Epididymitis [Unknown]
  - Orchitis [Unknown]
  - Off label use [Unknown]
  - Tooth infection [Unknown]
  - Testicular swelling [Unknown]
  - Prostate infection [Unknown]
  - Pollakiuria [Unknown]
  - Inappropriate schedule of drug administration [Unknown]
  - Cystitis [Unknown]
  - Testicular pain [Unknown]
  - Urinary tract infection [Unknown]
  - Groin pain [Unknown]
